FAERS Safety Report 5825419-3 (Version None)
Quarter: 2008Q3

REPORT INFORMATION
  Report Type: 
  Country: None (occurrence: None)
  Receive Date: 20080729
  Receipt Date: 20071025
  Transmission Date: 20090109
  Serious: No
  Sender: FDA-Public Use
  Company Number: US-BAYER-200713490BCC

PATIENT
  Sex: Male
  Weight: 103 kg

DRUGS (2)
  1. ALEVE (CAPLET) [Suspect]
     Indication: BACK PAIN
     Route: 048
  2. ADVIL LIQUID GEL [Concomitant]

REACTIONS (1)
  - STOMACH DISCOMFORT [None]
